FAERS Safety Report 20980377 (Version 1)
Quarter: 2022Q2

REPORT INFORMATION
  Report Type: Report from Study
  Country: FR (occurrence: FR)
  Receive Date: 20220620
  Receipt Date: 20220620
  Transmission Date: 20220720
  Serious: Yes (Death)
  Sender: FDA-Public Use
  Company Number: FR-TEVA-2022-FR-2045436

PATIENT
  Age: 41 Year
  Sex: Female

DRUGS (8)
  1. OLANZAPINE [Suspect]
     Active Substance: OLANZAPINE
     Indication: Psychotic disorder
     Dosage: UNK, UNKNOWN
     Route: 065
  2. ESCITALOPRAM [Suspect]
     Active Substance: ESCITALOPRAM OXALATE
     Indication: Product used for unknown indication
     Dosage: UNK, UNKNOWN
     Route: 065
  3. SULPIRIDE [Suspect]
     Active Substance: SULPIRIDE
     Indication: Product used for unknown indication
     Dosage: UNK, UNKNOWN
     Route: 065
  4. OXAZEPAM [Suspect]
     Active Substance: OXAZEPAM
     Indication: Product used for unknown indication
     Route: 065
  5. CODEINE [Suspect]
     Active Substance: CODEINE
     Indication: Emergency care
     Route: 065
  6. MORPHINE [Suspect]
     Active Substance: MORPHINE
     Indication: Emergency care
     Route: 065
  7. NALOXONE [Suspect]
     Active Substance: NALOXONE
     Indication: Emergency care
     Dosage: UNK, UNKNOWN
     Route: 065
  8. CITALOPRAM [Suspect]
     Active Substance: CITALOPRAM HYDROBROMIDE
     Indication: Product used for unknown indication
     Dosage: UNK, UNKNOWN
     Route: 065

REACTIONS (4)
  - Electrocardiogram QT prolonged [Fatal]
  - Depressed level of consciousness [Fatal]
  - Respiratory depression [Fatal]
  - Sudden cardiac death [Fatal]

NARRATIVE: CASE EVENT DATE: 20170101
